FAERS Safety Report 7042581-8 (Version None)
Quarter: 2010Q4

REPORT INFORMATION
  Report Type: 
  Country: None (occurrence: None)
  Receive Date: 20101013
  Receipt Date: 20101007
  Transmission Date: 20110411
  Serious: Yes (Hospitalization)
  Sender: FDA-Public Use
  Company Number: CHPA2010GB15736

PATIENT
  Age: 67 Year

DRUGS (3)
  1. IBUPROFEN (NGX) [Suspect]
     Dosage: UNK, UNK
     Route: 065
  2. HEPARIN [Suspect]
     Dosage: UNK, UNK
     Route: 065
  3. MORPHINE [Concomitant]
     Dosage: UNK, UNK
     Route: 065

REACTIONS (2)
  - BARRETT'S OESOPHAGUS [None]
  - GASTROINTESTINAL HAEMORRHAGE [None]
